FAERS Safety Report 21994839 (Version 1)
Quarter: 2023Q1

REPORT INFORMATION
  Report Type: Spontaneous
  Country: US (occurrence: None)
  Receive Date: 20230214
  Receipt Date: 20230214
  Transmission Date: 20230417
  Serious: Yes (unspecified)
  Sender: FDA-Public Use
  Company Number: None

PATIENT
  Age: 43 Year
  Sex: Female
  Weight: 72 kg

DRUGS (1)
  1. AKLIEF [Suspect]
     Active Substance: TRIFAROTENE
     Dates: start: 20230213, end: 20230214

REACTIONS (3)
  - Application site burn [None]
  - Application site ulcer [None]
  - Ulcer haemorrhage [None]

NARRATIVE: CASE EVENT DATE: 20230213
